FAERS Safety Report 5768063-9 (Version None)
Quarter: 2008Q2

REPORT INFORMATION
  Report Type: 
  Country: None (occurrence: None)
  Receive Date: 20080612
  Receipt Date: 20070515
  Transmission Date: 20081010
  Serious: No
  Sender: FDA-Public Use
  Company Number: US-ASTRAZENECA-2007UW09786

PATIENT
  Age: 38 Year
  Sex: Female
  Weight: 81.6 kg

DRUGS (4)
  1. FASLODEX [Suspect]
     Indication: OVARIAN CANCER
     Route: 030
     Dates: start: 20070401
  2. ATIVAN [Concomitant]
  3. AMBIEN [Concomitant]
  4. ZYRTEC [Concomitant]

REACTIONS (8)
  - ABDOMINAL DISCOMFORT [None]
  - BACK PAIN [None]
  - CONSTIPATION [None]
  - DECREASED APPETITE [None]
  - DIARRHOEA [None]
  - FATIGUE [None]
  - HEADACHE [None]
  - NAUSEA [None]
